FAERS Safety Report 24886035 (Version 3)
Quarter: 2025Q1

REPORT INFORMATION
  Report Type: Report from Study
  Country: US (occurrence: US)
  Receive Date: 20250125
  Receipt Date: 20250227
  Transmission Date: 20250409
  Serious: Yes (Hospitalization, Other)
  Sender: ABBVIE
  Company Number: US-ABBVIE-6100564

PATIENT
  Age: 32 Year
  Sex: Female
  Weight: 106.14 kg

DRUGS (5)
  1. SKYRIZI [Suspect]
     Active Substance: RISANKIZUMAB-RZAA
     Indication: Colitis ulcerative
     Route: 058
     Dates: start: 20241226
  2. SKYRIZI [Suspect]
     Active Substance: RISANKIZUMAB-RZAA
     Indication: Colitis ulcerative
     Route: 042
     Dates: start: 20241003, end: 20241003
  3. SUNOSI [Concomitant]
     Active Substance: SOLRIAMFETOL
     Indication: Narcolepsy
  4. NURTEC ODT [Concomitant]
     Active Substance: RIMEGEPANT SULFATE
     Indication: Migraine
  5. LEXAPRO [Concomitant]
     Active Substance: ESCITALOPRAM OXALATE
     Indication: Cataplexy

REACTIONS (9)
  - Norovirus infection [Recovered/Resolved]
  - Urticaria [Recovered/Resolved]
  - Large intestinal haemorrhage [Not Recovered/Not Resolved]
  - Rash [Recovered/Resolved]
  - Chills [Recovered/Resolved]
  - Food refusal [Recovered/Resolved]
  - Abdominal discomfort [Not Recovered/Not Resolved]
  - Abnormal faeces [Not Recovered/Not Resolved]
  - Inflammation [Recovered/Resolved]

NARRATIVE: CASE EVENT DATE: 20250121
